FAERS Safety Report 7006070-9 (Version None)
Quarter: 2010Q3

REPORT INFORMATION
  Report Type: 
  Country: None (occurrence: None)
  Receive Date: 20100921
  Receipt Date: 20100909
  Transmission Date: 20110219
  Serious: Yes (Other)
  Sender: FDA-Public Use
  Company Number: US-PFIZER INC-2010114743

PATIENT
  Sex: Female
  Weight: 52.16 kg

DRUGS (3)
  1. NEURONTIN [Suspect]
     Indication: FIBROMYALGIA
  2. LYRICA [Suspect]
     Indication: FIBROMYALGIA
     Dosage: UNK
     Dates: start: 20090101, end: 20090101
  3. CLONAZEPAM [Concomitant]
     Dosage: 1 MG, UNK

REACTIONS (5)
  - AMNESIA [None]
  - DEHYDRATION [None]
  - SUICIDAL IDEATION [None]
  - VISION BLURRED [None]
  - VISUAL ACUITY REDUCED [None]
